FAERS Safety Report 4901026-1 (Version None)
Quarter: 2006Q1

REPORT INFORMATION
  Report Type: 
  Country: None (occurrence: None)
  Receive Date: 20060201
  Receipt Date: 20060119
  Transmission Date: 20060701
  Serious: Yes (Other)
  Sender: FDA-Public Use
  Company Number: GB200601002466

PATIENT
  Age: 36 Year
  Sex: Female
  Weight: 54.4 kg

DRUGS (3)
  1. YENTREVE (DULOXETINE HYDROCHLORIDE) [Suspect]
     Indication: STRESS INCONTINENCE
     Dosage: 1 UNK, 2/D
     Dates: start: 20060106, end: 20060109
  2. FEMULEN (ETYNODIOL DIACETATE) [Concomitant]
  3. DICLOFENAC SODIUM [Concomitant]

REACTIONS (3)
  - DYSTONIA [None]
  - PALPITATIONS [None]
  - PARALYSIS [None]
